FAERS Safety Report 8881252 (Version 1)
Quarter: 2012Q4

REPORT INFORMATION
  Report Type: 
  Country: US (occurrence: US)
  Receive Date: 20121031
  Receipt Date: 20121031
  Transmission Date: 20130627
  Serious: Yes (Other)
  Sender: FDA-Public Use
  Company Number: US-ASTRAZENECA-2012SE79907

PATIENT
  Age: 55 Year
  Sex: Female

DRUGS (12)
  1. FASLODEX [Suspect]
     Indication: BREAST CANCER
     Route: 030
     Dates: start: 2011
  2. LISINOPRIL [Concomitant]
  3. SYNTHROID [Concomitant]
  4. ADVIL [Concomitant]
     Dosage: PRN
  5. VICODEN [Concomitant]
     Dosage: PRN
  6. FENOFIBRATE [Concomitant]
  7. AMBIEN [Concomitant]
  8. EFFEXOR [Concomitant]
  9. CALCIUM [Concomitant]
  10. K-DUR [Concomitant]
  11. LASIX [Concomitant]
  12. METFORMIN [Concomitant]

REACTIONS (6)
  - Cough [Unknown]
  - Hyperhidrosis [Unknown]
  - Throat irritation [Unknown]
  - Dysgeusia [Unknown]
  - Abdominal pain [Unknown]
  - Retching [Unknown]
